FAERS Safety Report 5815698-0 (Version None)
Quarter: 2008Q3

REPORT INFORMATION
  Report Type: 
  Country: None (occurrence: None)
  Receive Date: 20080721
  Receipt Date: 20080717
  Transmission Date: 20090109
  Serious: Yes (Other)
  Sender: FDA-Public Use
  Company Number: GB-RANBAXY-2008RR-16425

PATIENT

DRUGS (1)
  1. FLUCONAZOLE 100MG CAPSULES [Suspect]
     Dosage: 50 MG, QD

REACTIONS (1)
  - COSTOCHONDRITIS [None]
